FAERS Safety Report 8246035-2 (Version None)
Quarter: 2012Q1

REPORT INFORMATION
  Report Type: 
  Country: None (occurrence: None)
  Receive Date: 20120330
  Receipt Date: 20120321
  Transmission Date: 20120608
  Serious: No
  Sender: FDA-Public Use
  Company Number: US-JNJFOC-20120310705

PATIENT
  Sex: Female
  Weight: 90.72 kg

DRUGS (3)
  1. FIORICET [Concomitant]
     Indication: MIGRAINE
     Route: 048
  2. DURAGESIC-100 [Suspect]
     Indication: BACK PAIN
     Route: 062
     Dates: start: 20100101
  3. DURAGESIC-100 [Suspect]
     Indication: FIBROMYALGIA
     Route: 062
     Dates: start: 20100101

REACTIONS (5)
  - PRODUCT ADHESION ISSUE [None]
  - HYPERTENSION [None]
  - CARDIAC MURMUR [None]
  - DRUG INEFFECTIVE [None]
  - WRONG TECHNIQUE IN DRUG USAGE PROCESS [None]
